FAERS Safety Report 6618406-9 (Version None)
Quarter: 2010Q1

REPORT INFORMATION
  Report Type: 
  Country: None (occurrence: None)
  Receive Date: 20100308
  Receipt Date: 20100226
  Transmission Date: 20100710
  Serious: Yes (Other)
  Sender: FDA-Public Use
  Company Number: B0636406A

PATIENT
  Sex: Male

DRUGS (5)
  1. LAMOTRIGINE [Suspect]
     Indication: BIPOLAR DISORDER
     Dosage: 200MG PER DAY
     Route: 048
     Dates: start: 20091101
  2. QUETIAPINE [Concomitant]
     Dosage: 275MG PER DAY
     Route: 065
  3. TRANYLCYPROMINE SULFATE [Concomitant]
     Route: 065
  4. BENADRYL [Concomitant]
     Indication: DERMATITIS
     Route: 065
  5. EMOLLIENT [Concomitant]
     Route: 065

REACTIONS (5)
  - DERMATITIS [None]
  - MOUTH ULCERATION [None]
  - NEUTROPENIA [None]
  - ORAL PAIN [None]
  - SKIN CHAPPED [None]
